FAERS Safety Report 7916915-3 (Version None)
Quarter: 2011Q4

REPORT INFORMATION
  Report Type: 
  Country: None (occurrence: None)
  Receive Date: 20111116
  Receipt Date: 20111108
  Transmission Date: 20120403
  Serious: No
  Sender: FDA-Public Use
  Company Number: FR-JNJFOC-20111006510

PATIENT
  Sex: Female
  Weight: 53 kg

DRUGS (12)
  1. DURAGESIC-100 [Suspect]
     Dosage: 12.5 UG/HR+ AN HAFL OF 12.5UG/HR PATCH
     Route: 062
     Dates: start: 20111001
  2. DURAGESIC-100 [Suspect]
     Route: 062
     Dates: start: 20110701
  3. MORPHINE SULFATE [Concomitant]
  4. DURAGESIC-100 [Suspect]
     Indication: PAIN
     Route: 062
     Dates: start: 20111001
  5. DURAGESIC-100 [Suspect]
     Dosage: 12.5 UG/HR+ AN HAFL OF 12.5UG/HR PATCH
     Route: 062
     Dates: start: 20111001
  6. DURAGESIC-100 [Suspect]
     Route: 062
     Dates: start: 20111001
  7. DURAGESIC-100 [Suspect]
     Indication: OSTEOPOROSIS
     Route: 062
     Dates: start: 20111001
  8. DURAGESIC-100 [Suspect]
     Dosage: 12.5 UG/HR+ AN HAFL OF 12.5UG/HR PATCH
     Route: 062
     Dates: start: 20111001
  9. DURAGESIC-100 [Suspect]
     Route: 062
     Dates: start: 20110701
  10. ALL OTHER MEDICATIONS [Concomitant]
  11. DURAGESIC-100 [Suspect]
     Indication: INTERVERTEBRAL DISC COMPRESSION
     Route: 062
     Dates: start: 20110701
  12. ACETAMINOPHEN [Concomitant]

REACTIONS (3)
  - TOXICITY TO VARIOUS AGENTS [None]
  - WRONG TECHNIQUE IN DRUG USAGE PROCESS [None]
  - SEDATION [None]
